FAERS Safety Report 9010035 (Version 1)
Quarter: 2013Q1

REPORT INFORMATION
  Report Type: Spontaneous
  Country: US (occurrence: US)
  Receive Date: 20130110
  Receipt Date: 20130110
  Transmission Date: 20140127
  Serious: Yes (Other)
  Sender: FDA-Public Use
  Company Number: US-009507513-1007USA03884

PATIENT
  Age: 18 Month
  Sex: Male
  Weight: 11.34 kg

DRUGS (1)
  1. SINGULAIR [Suspect]
     Indication: ASTHMA
     Dosage: UNK, QD
     Route: 048
     Dates: start: 20091029, end: 20091119

REACTIONS (4)
  - Abnormal behaviour [Unknown]
  - Convulsion [Unknown]
  - Insomnia [Unknown]
  - Rash [Unknown]
